FAERS Safety Report 19182778 (Version 1)
Quarter: 2021Q2

REPORT INFORMATION
  Report Type: Spontaneous
  Country: US (occurrence: US)
  Receive Date: 20210426
  Receipt Date: 20210426
  Transmission Date: 20210717
  Serious: No
  Sender: FDA-Public Use
  Company Number: US-B.I. PHARMACEUTICALS,INC./RIDGEFIELD-2021-BI-098433

PATIENT
  Age: 73 Year
  Sex: Female

DRUGS (7)
  1. LISINOPRIL. [Concomitant]
     Active Substance: LISINOPRIL
     Indication: PRODUCT USED FOR UNKNOWN INDICATION
     Dosage: QD
     Route: 065
  2. JARDIANCE [Suspect]
     Active Substance: EMPAGLIFLOZIN
     Indication: BLOOD GLUCOSE INCREASED
     Dosage: 25MG QD
     Route: 065
     Dates: start: 20210325, end: 20210407
  3. SIMVASTATIN. [Concomitant]
     Active Substance: SIMVASTATIN
     Indication: PRODUCT USED FOR UNKNOWN INDICATION
     Dosage: QD
     Route: 065
  4. BABY ASPIRIN [Concomitant]
     Active Substance: ASPIRIN
     Indication: PRODUCT USED FOR UNKNOWN INDICATION
     Route: 065
  5. MULTIVITAMINS, OTHER COMBINATIONS [Concomitant]
     Indication: PRODUCT USED FOR UNKNOWN INDICATION
     Route: 065
  6. METFORMIN [Concomitant]
     Active Substance: METFORMIN HYDROCHLORIDE
     Indication: BLOOD GLUCOSE INCREASED
     Dosage: 1000MG BID
     Route: 065
  7. CALCIUM AMINOSALICYLATE [Concomitant]
     Indication: PRODUCT USED FOR UNKNOWN INDICATION
     Route: 065

REACTIONS (3)
  - Rash [Recovered/Resolved]
  - Blood glucose increased [Not Recovered/Not Resolved]
  - Blood glucose [Not Recovered/Not Resolved]

NARRATIVE: CASE EVENT DATE: 202103
